FAERS Safety Report 24436842 (Version 1)
Quarter: 2024Q4

REPORT INFORMATION
  Report Type: Report from Study
  Country: US (occurrence: US)
  Receive Date: 20241015
  Receipt Date: 20241015
  Transmission Date: 20250114
  Serious: Yes (Other)
  Sender: ABBVIE
  Company Number: US-ABBVIE-5960101

PATIENT
  Sex: Female

DRUGS (3)
  1. SKYRIZI [Suspect]
     Active Substance: RISANKIZUMAB-RZAA
     Indication: Psoriasis
     Dosage: STRENGTH 150 MG/ML WEEK 0
     Route: 058
     Dates: start: 20240319, end: 20240319
  2. SKYRIZI [Suspect]
     Active Substance: RISANKIZUMAB-RZAA
     Dosage: STRENGTH 150 MG/ML WEEK 4
     Route: 058
     Dates: start: 20240416, end: 20240416
  3. SKYRIZI [Suspect]
     Active Substance: RISANKIZUMAB-RZAA
     Dosage: STRENGTH 150 MG/ML WEEK 16
     Route: 058
     Dates: start: 20240709, end: 20240709

REACTIONS (2)
  - Lip and/or oral cavity cancer [Unknown]
  - Gingival swelling [Unknown]

NARRATIVE: CASE EVENT DATE: 20240101
